FAERS Safety Report 4349120-0 (Version None)
Quarter: 2004Q2

REPORT INFORMATION
  Report Type: 
  Country: None (occurrence: None)
  Receive Date: 20040427
  Receipt Date: 20040427
  Transmission Date: 20050107
  Serious: Yes (Death)
  Sender: FDA-Public Use
  Company Number: None

PATIENT
  Age: 64 Year
  Sex: Female
  Weight: 66.2252 kg

DRUGS (10)
  1. PACLITAXEL [Suspect]
     Indication: OVARIAN CANCER
     Dosage: 301 MG DAY 1 IV
     Route: 042
     Dates: start: 20040406, end: 20040406
  2. GEMCITABINE [Suspect]
     Dosage: 1376 MG DAY 1 AND 8 IV
     Route: 042
     Dates: start: 20040406, end: 20040413
  3. LIPITOR [Concomitant]
  4. EFFEXOR [Concomitant]
  5. COUMADIN [Concomitant]
  6. MULTI-VITAMIN [Concomitant]
  7. ZOFRAN [Concomitant]
  8. COMPAZINE [Concomitant]
  9. DECADRON [Concomitant]
  10. ATIVAN [Concomitant]

REACTIONS (5)
  - ABDOMINAL PAIN [None]
  - CIRCULATORY COLLAPSE [None]
  - DIARRHOEA [None]
  - NAUSEA [None]
  - VOMITING [None]
